FAERS Safety Report 14992638 (Version 1)
Quarter: 2018Q2

REPORT INFORMATION
  Report Type: Spontaneous
  Country: DE (occurrence: DE)
  Receive Date: 20180609
  Receipt Date: 20180609
  Transmission Date: 20180711
  Serious: Yes (Hospitalization)
  Sender: FDA-Public Use
  Company Number: DE-TEVA-2018-DE-903644

PATIENT
  Age: 83 Year
  Sex: Male
  Weight: 70 kg

DRUGS (14)
  1. KALIUMCHLORID [Concomitant]
     Dosage: 1-0-1
     Route: 048
  2. MOVICOL [Concomitant]
     Active Substance: POLYETHYLENE GLYCOL 3350\POTASSIUM CHLORIDE\SODIUM BICARBONATE\SODIUM CHLORIDE
     Dosage: B.B., PULVER
     Route: 048
  3. THIAMAZOLE [Concomitant]
     Active Substance: METHIMAZOLE
     Dosage: 1-1-1-1,
     Route: 048
  4. GLIQUIDONE [Concomitant]
     Active Substance: GLIQUIDONE
     Dosage: 1-0-0,
     Route: 048
  5. METAMIZOL [Concomitant]
     Active Substance: METAMIZOLE SODIUM
     Dosage: B.B.,
     Route: 048
  6. HYDROCHLOROTHIAZID [Concomitant]
     Active Substance: HYDROCHLOROTHIAZIDE
     Dosage: 1-0-0,
     Route: 048
  7. INSULIN GLARGINE [Concomitant]
     Active Substance: INSULIN GLARGINE
     Dosage: PRE-FILLED SYRINGES
     Route: 058
  8. METOPROLOL SUCCINAT [Concomitant]
     Dosage: 1-0-1,
     Route: 048
  9. INSULIN LISPRO [Concomitant]
     Active Substance: INSULIN LISPRO
     Dosage: PRE-FILLED SYRINGES
     Route: 058
  10. OMEPRAZOL [Concomitant]
     Active Substance: OMEPRAZOLE
     Dosage: 1-0-0,
     Route: 048
  11. ENOXACIN [Concomitant]
     Active Substance: ENOXACIN
     Dosage: 0.4 ML, PRE-FILLED SYRINGES
     Route: 058
  12. PHENPROCOUMON [Suspect]
     Active Substance: PHENPROCOUMON
     Route: 048
  13. FUROSEMID [Suspect]
     Active Substance: FUROSEMIDE
     Dosage: 1-1-0,
     Route: 048
  14. TAMSULOSIN [Concomitant]
     Active Substance: TAMSULOSIN
     Dosage: 1-0-0,
     Route: 048

REACTIONS (3)
  - Skin ulcer [Unknown]
  - Electrolyte imbalance [Unknown]
  - Pain [Unknown]
